FAERS Safety Report 14087058 (Version 2)
Quarter: 2019Q1

REPORT INFORMATION
  Report Type: Report from Study
  Country: DE (occurrence: DE)
  Receive Date: 20171013
  Receipt Date: 20190116
  Transmission Date: 20190417
  Serious: Yes (Hospitalization)
  Sender: FDA-Public Use
  Company Number: DE-JNJFOC-20171008119

PATIENT
  Age: 59 Year
  Sex: Male
  Weight: 84.5 kg

DRUGS (4)
  1. IBRUTINIB [Suspect]
     Active Substance: IBRUTINIB
     Indication: CHRONIC LYMPHOCYTIC LEUKAEMIA
     Route: 048
     Dates: start: 20170707, end: 20170711
  2. PREDNISOLONE. [Concomitant]
     Active Substance: PREDNISOLONE
     Indication: PROPHYLAXIS
     Route: 065
  3. OCTAGAM IMMUNE GLOBULIN (HUMAN) [Concomitant]
     Active Substance: HUMAN IMMUNOGLOBULIN G
     Indication: PROPHYLAXIS
     Route: 065
  4. DEXAMETHASONE. [Concomitant]
     Active Substance: DEXAMETHASONE
     Indication: PROPHYLAXIS
     Route: 065

REACTIONS (1)
  - Immune thrombocytopenic purpura [Recovered/Resolved]

NARRATIVE: CASE EVENT DATE: 20170711
